FAERS Safety Report 8205245-0 (Version None)
Quarter: 2012Q1

REPORT INFORMATION
  Report Type: 
  Country: None (occurrence: None)
  Receive Date: 20120313
  Receipt Date: 20110512
  Transmission Date: 20120608
  Serious: No
  Sender: FDA-Public Use
  Company Number: US-MYLANLABS-2011S1010086

PATIENT
  Age: 60 Year
  Sex: Female

DRUGS (2)
  1. BENAZEPRIL HYDROCHLORIDE [Suspect]
     Indication: BLOOD PRESSURE INCREASED
     Route: 048
     Dates: start: 20090101
  2. THYROID THERAPY [Concomitant]

REACTIONS (3)
  - THYROID DISORDER [None]
  - ABDOMINAL DISTENSION [None]
  - WEIGHT INCREASED [None]
